FAERS Safety Report 5412789-3 (Version None)
Quarter: 2007Q3

REPORT INFORMATION
  Report Type: 
  Country: None (occurrence: None)
  Receive Date: 20070813
  Receipt Date: 20070730
  Transmission Date: 20080115
  Serious: Yes (Other)
  Sender: FDA-Public Use
  Company Number: GB-ELI_LILLY_AND_COMPANY-GB200707007085

PATIENT
  Age: 39 Year
  Sex: Female

DRUGS (3)
  1. FLUOXETINE [Suspect]
     Dosage: 20 MG, DAILY (1/D)
     Route: 048
  2. CLOZARIL [Concomitant]
     Indication: SCHIZOPHRENIA
     Dosage: 500 MG, DAILY (1/D)
     Route: 048
     Dates: start: 19941012
  3. CLOZARIL [Concomitant]
     Dosage: 400 MG, DAILY (1/D)
     Route: 048

REACTIONS (3)
  - CONVULSION [None]
  - FALL [None]
  - TREMOR [None]
